FAERS Safety Report 8043113-8 (Version None)
Quarter: 2012Q1

REPORT INFORMATION
  Report Type: 
  Country: None (occurrence: None)
  Receive Date: 20120112
  Receipt Date: 20111228
  Transmission Date: 20120608
  Serious: No
  Sender: FDA-Public Use
  Company Number: US-BAYER-2011-124317

PATIENT
  Sex: Female

DRUGS (1)
  1. AVELOX [Suspect]
     Dosage: UNK

REACTIONS (4)
  - INSOMNIA [None]
  - CRYING [None]
  - ANXIETY [None]
  - NERVOUSNESS [None]
